FAERS Safety Report 5773723-X (Version None)
Quarter: 2008Q2

REPORT INFORMATION
  Report Type: 
  Country: None (occurrence: None)
  Receive Date: 20080616
  Receipt Date: 20080609
  Transmission Date: 20081010
  Serious: Yes (Congenital Anomaly, Other)
  Sender: FDA-Public Use
  Company Number: FR-BRISTOL-MYERS SQUIBB COMPANY-13881982

PATIENT
  Sex: Male
  Weight: 3 kg

DRUGS (2)
  1. SUSTIVA [Suspect]
     Indication: HIV INFECTION
     Route: 064
     Dates: end: 20070521
  2. TRUVADA [Suspect]
     Indication: HIV INFECTION
     Route: 064
     Dates: end: 20000101

REACTIONS (3)
  - FOETAL GROWTH RETARDATION [None]
  - HAEMANGIOMA [None]
  - PREGNANCY [None]
